FAERS Safety Report 6530516 (Version 2)
Quarter: 2013Q2

REPORT INFORMATION
  Report Type: Report from Study
  Country: US (occurrence: US)
  Receive Date: 20080118
  Receipt Date: 20130503
  Transmission Date: 20140414
  Serious: Yes (Other)
  Sender: FDA-Public Use
  Company Number: US-GILEAD-2008-0014901

PATIENT
  Sex: Male

DRUGS (5)
  1. TENOFOVIR DISOPROXIL FUMARATE [Suspect]
     Indication: HIV INFECTION
     Dates: start: 200207
  2. LAMIVUDINE [Concomitant]
     Indication: HIV INFECTION
     Dates: start: 200207
  3. STAVUDINE [Concomitant]
     Indication: HIV INFECTION
     Dates: start: 200207
  4. RITONAVIR [Concomitant]
     Indication: HIV INFECTION
     Dates: start: 200207
  5. TRIMETHOPRIM-SULFAMETHOXAZOLE [Concomitant]
     Indication: PROPHYLAXIS
     Dates: start: 200207

REACTIONS (2)
  - Nephropathy [Unknown]
  - Renal failure [Unknown]
